FAERS Safety Report 9366225 (Version 2)
Quarter: 2013Q4

REPORT INFORMATION
  Report Type: Spontaneous
  Country: FR (occurrence: FR)
  Receive Date: 20130625
  Receipt Date: 20131004
  Transmission Date: 20140711
  Serious: Yes (Other)
  Sender: FDA-Public Use
  Company Number: FR-AMGEN-FRASP2013044057

PATIENT
  Age: 64 Year
  Sex: Male
  Weight: 103 kg

DRUGS (4)
  1. NEULASTA [Suspect]
     Indication: PROPHYLAXIS
     Dosage: 6 MG, 1/15D
     Route: 058
     Dates: start: 20130609
  2. CAMPTO [Concomitant]
     Indication: COLORECTAL CANCER METASTATIC
     Dosage: 410 UNK, UNK
     Route: 042
     Dates: start: 20121018, end: 20130827
  3. AVASTIN                            /01555201/ [Concomitant]
     Indication: COLORECTAL CANCER METASTATIC
     Dosage: UNK
     Route: 042
     Dates: start: 20121018, end: 20130827
  4. 5 FU [Concomitant]
     Indication: COLORECTAL CANCER METASTATIC
     Dosage: UNK
     Route: 042
     Dates: start: 20121018, end: 20130827

REACTIONS (3)
  - Chest pain [Recovered/Resolved]
  - Arthralgia [Recovered/Resolved]
  - Back pain [Unknown]
